FAERS Safety Report 6109819-2 (Version None)
Quarter: 2009Q1

REPORT INFORMATION
  Report Type: 
  Country: None (occurrence: None)
  Receive Date: 20090310
  Receipt Date: 20080609
  Transmission Date: 20090719
  Serious: No
  Sender: FDA-Public Use
  Company Number: A0731936A

PATIENT
  Age: 46 Year
  Sex: Female

DRUGS (3)
  1. NICORETTE (MINT) [Suspect]
  2. NICORETTE [Suspect]
  3. NICODERM CQ [Suspect]

REACTIONS (4)
  - DIZZINESS [None]
  - HICCUPS [None]
  - INTENTIONAL DRUG MISUSE [None]
  - THROAT IRRITATION [None]
